FAERS Safety Report 25059760 (Version 3)
Quarter: 2025Q3

REPORT INFORMATION
  Report Type: Spontaneous
  Country: EU (occurrence: EU)
  Receive Date: 20250310
  Receipt Date: 20250813
  Transmission Date: 20251021
  Serious: Yes (Death, Other)
  Sender: GILEAD
  Company Number: EU-GILEAD-2025-0706254

PATIENT
  Age: 57 Year
  Sex: Female
  Weight: 63.7 kg

DRUGS (13)
  1. YESCARTA [Suspect]
     Active Substance: AXICABTAGENE CILOLEUCEL
     Indication: Diffuse large B-cell lymphoma
     Route: 065
     Dates: start: 20250224, end: 20250224
  2. SULFAMETHOXAZOLE\TRIMETHOPRIM [Concomitant]
     Active Substance: SULFAMETHOXAZOLE\TRIMETHOPRIM
  3. CONTROLOC [Concomitant]
     Active Substance: PANTOPRAZOLE SODIUM
  4. VALACYCLOVIR HYDROCHLORIDE [Concomitant]
     Active Substance: VALACYCLOVIR HYDROCHLORIDE
  5. LEVETIRACETAM [Concomitant]
     Active Substance: LEVETIRACETAM
     Indication: Prophylaxis
     Route: 048
  6. TAMIFLU [Concomitant]
     Active Substance: OSELTAMIVIR PHOSPHATE
  7. CEFEPIME [Concomitant]
     Active Substance: CEFEPIME HYDROCHLORIDE
  8. EMEND [Concomitant]
     Active Substance: APREPITANT
  9. KINERET [Concomitant]
     Active Substance: ANAKINRA
  10. DEXAMED [DEXAMETHASONE] [Concomitant]
  11. ELECTROLYTES NOS [Concomitant]
     Active Substance: ELECTROLYTES NOS
  12. POTASSIUM CHLORIDE [Concomitant]
     Active Substance: POTASSIUM CHLORIDE
  13. MAGNESIUM SULFURICUM [Concomitant]

REACTIONS (4)
  - Brain herniation [Fatal]
  - Brain oedema [Fatal]
  - Immune effector cell-associated neurotoxicity syndrome [Fatal]
  - Pyrexia [Recovered/Resolved]

NARRATIVE: CASE EVENT DATE: 20250225
